FAERS Safety Report 9329147 (Version 1)
Quarter: 2013Q2

REPORT INFORMATION
  Report Type: Spontaneous
  Country: PL (occurrence: PL)
  Receive Date: 20130604
  Receipt Date: 20130604
  Transmission Date: 20140414
  Serious: Yes (Hospitalization, Other)
  Sender: FDA-Public Use
  Company Number: PL-ACTELION-A-CH2013-81541

PATIENT
  Age: 32 Year
  Sex: Male
  Weight: 60 kg

DRUGS (4)
  1. TRACLEER [Suspect]
     Indication: PULMONARY ARTERIAL HYPERTENSION
     Dosage: 125 MG, BID
     Route: 048
     Dates: start: 201001, end: 201211
  2. TRACLEER [Suspect]
     Dosage: 62.5 MG, BID
     Route: 048
     Dates: start: 200912, end: 201001
  3. TRACLEER [Suspect]
     Dosage: UNK
     Route: 048
     Dates: start: 201211, end: 201303
  4. TRACLEER [Suspect]
     Dosage: UNK
     Route: 048
     Dates: start: 201303, end: 201304

REACTIONS (14)
  - Cardiac failure [Recovered/Resolved]
  - Eisenmenger^s syndrome [Unknown]
  - Condition aggravated [Unknown]
  - General physical condition abnormal [Recovered/Resolved]
  - Fluid retention [Recovered/Resolved]
  - Dyspnoea [Recovered/Resolved]
  - Vomiting [Recovered/Resolved]
  - Abdominal pain [Recovered/Resolved]
  - Diarrhoea [Recovered/Resolved]
  - Chest pain [Recovered/Resolved]
  - Arthralgia [Recovered/Resolved]
  - Pleural effusion [Unknown]
  - Thoracic cavity drainage [Unknown]
  - Nausea [Recovered/Resolved]
